FAERS Safety Report 9834996 (Version 1)
Quarter: 2014Q1

REPORT INFORMATION
  Report Type: Spontaneous
  Country: NO (occurrence: NO)
  Receive Date: 20140122
  Receipt Date: 20140122
  Transmission Date: 20141002
  Serious: Yes (Hospitalization)
  Sender: FDA-Public Use
  Company Number: NO-PFIZER INC-2014016355

PATIENT
  Age: 73 Year
  Sex: Male

DRUGS (2)
  1. LIPITOR [Suspect]
     Indication: HYPERCHOLESTEROLAEMIA
     Dosage: 40 MG, 1X/DAY
     Route: 048
     Dates: start: 201310, end: 201312
  2. KEPPRA [Suspect]
     Dosage: UNK
     Dates: start: 201310, end: 201311

REACTIONS (4)
  - General physical health deterioration [Unknown]
  - Abdominal pain [Unknown]
  - Rash [Unknown]
  - Hepatic enzyme increased [Unknown]
